FAERS Safety Report 5841471-3 (Version None)
Quarter: 2008Q3

REPORT INFORMATION
  Report Type: 
  Country: None (occurrence: None)
  Receive Date: 20080812
  Receipt Date: 20080801
  Transmission Date: 20090109
  Serious: Yes (Death)
  Sender: FDA-Public Use
  Company Number: US-JNJFOC-20080601602

PATIENT
  Sex: Female
  Weight: 77.11 kg

DRUGS (14)
  1. DURAGESIC-100 [Suspect]
     Dosage: 2 X 50 UG/HR AT UNKNOWN FREQUENCY
     Route: 062
  2. DURAGESIC-100 [Suspect]
     Route: 062
  3. DURAGESIC-100 [Suspect]
     Indication: PAIN
     Route: 062
  4. DILAUDID [Concomitant]
     Route: 065
  5. DILAUDID [Concomitant]
     Route: 065
  6. DILAUDID [Concomitant]
     Indication: PAIN
     Route: 065
  7. PHENERGAN HCL [Concomitant]
     Indication: DRUG USE FOR UNKNOWN INDICATION
     Route: 065
  8. LORTAB [Concomitant]
     Indication: ANXIETY
     Route: 065
  9. ATIVAN [Concomitant]
     Indication: ANXIETY
     Route: 065
  10. IBUPROFEN [Concomitant]
     Indication: DRUG USE FOR UNKNOWN INDICATION
     Route: 065
  11. TYLENOL [Concomitant]
     Indication: DRUG USE FOR UNKNOWN INDICATION
     Route: 065
  12. NEXIUM [Concomitant]
     Indication: DRUG USE FOR UNKNOWN INDICATION
     Route: 042
  13. NEXIUM [Concomitant]
     Route: 048
  14. LABETALOL HCL [Concomitant]
     Route: 042

REACTIONS (1)
  - CIRCULATORY COLLAPSE [None]
